FAERS Safety Report 14018081 (Version 2)
Quarter: 2018Q3

REPORT INFORMATION
  Report Type: Spontaneous
  Country: FR (occurrence: FR)
  Receive Date: 20170928
  Receipt Date: 20180719
  Transmission Date: 20181010
  Serious: Yes (Other)
  Sender: FDA-Public Use
  Company Number: FR-MERCK KGAA-2027989

PATIENT
  Age: 68 Year
  Sex: Female

DRUGS (2)
  1. NOVOTHYROX [Suspect]
     Active Substance: LEVOTHYROXINE SODIUM
     Indication: AUTOIMMUNE THYROIDITIS
     Dates: start: 2004, end: 20180705
  2. TEMESTA (LORAZEPAM) [Suspect]
     Active Substance: LORAZEPAM

REACTIONS (11)
  - Speech disorder [None]
  - Syncope [None]
  - Blood thyroid stimulating hormone decreased [None]
  - Paraesthesia [None]
  - Confusional state [None]
  - Thyroid mass [None]
  - Angioedema [None]
  - Drug hypersensitivity [None]
  - Vertigo [None]
  - Hospitalisation [None]
  - Swelling [Not Recovered/Not Resolved]

NARRATIVE: CASE EVENT DATE: 2016
